FAERS Safety Report 5102933-X (Version None)
Quarter: 2006Q3

REPORT INFORMATION
  Report Type: 
  Country: None (occurrence: None)
  Receive Date: 20060912
  Receipt Date: 20060905
  Transmission Date: 20061208
  Serious: Yes (Hospitalization)
  Sender: FDA-Public Use
  Company Number: DE-BOEHRINGER INGELHEIM PHARMACEUTICALS, INC.-2006-DE-04694DE

PATIENT
  Sex: Male
  Weight: 98 kg

DRUGS (6)
  1. MICARDIS HCT [Suspect]
     Indication: ESSENTIAL HYPERTENSION
     Dosage: 80 MG TELMISARTAN, 12,5 MG HCT
     Dates: start: 20060405
  2. DIURETICS [Concomitant]
     Indication: HYPERTENSION
  3. ACE-HEMMER [Concomitant]
     Indication: HYPERTENSION
  4. CALCIUM ANTAGONIST [Concomitant]
     Indication: HYPERTENSION
  5. METFORMIN [Concomitant]
     Indication: DIABETES MELLITUS
  6. ACARBOSE [Concomitant]
     Indication: DIABETES MELLITUS

REACTIONS (1)
  - ARRHYTHMIA [None]
